FAERS Safety Report 13697854 (Version 1)
Quarter: 2017Q2

REPORT INFORMATION
  Report Type: Spontaneous
  Country: US (occurrence: US)
  Receive Date: 20170628
  Receipt Date: 20170628
  Transmission Date: 20170830
  Serious: No
  Sender: FDA-Public Use
  Company Number: US-BAYER-2017-124512

PATIENT
  Age: 80 Year
  Sex: Female

DRUGS (1)
  1. CLIMARA [Suspect]
     Active Substance: ESTRADIOL
     Dosage: 0.037 MG
     Route: 062
     Dates: start: 20161227, end: 20161230

REACTIONS (4)
  - Hot flush [Not Recovered/Not Resolved]
  - Insomnia [None]
  - Abdominal pain upper [Recovered/Resolved]
  - Product physical issue [None]

NARRATIVE: CASE EVENT DATE: 20161227
